FAERS Safety Report 6213926-3 (Version None)
Quarter: 2009Q2

REPORT INFORMATION
  Report Type: 
  Country: None (occurrence: None)
  Receive Date: 20090601
  Receipt Date: 20090601
  Transmission Date: 20091009
  Serious: Yes (Hospitalization, Other)
  Sender: FDA-Public Use
  Company Number: None

PATIENT
  Age: 57 Year
  Sex: Male
  Weight: 72.5755 kg

DRUGS (3)
  1. BOTOX [Suspect]
     Indication: TARDIVE DYSKINESIA
     Dosage: TOTAL UNKNOWN ONCE IM
     Route: 030
     Dates: start: 20070221, end: 20070221
  2. ANTIHYPERTENSIVE [Concomitant]
  3. DULOXETINE HYDROCHLORIDE [Concomitant]

REACTIONS (2)
  - ABDOMINAL PAIN [None]
  - GASTROINTESTINAL MOTILITY DISORDER [None]
